FAERS Safety Report 11722575 (Version 2)
Quarter: 2015Q4

REPORT INFORMATION
  Report Type: Spontaneous
  Country: JP (occurrence: JP)
  Receive Date: 20151111
  Receipt Date: 20151123
  Transmission Date: 20160304
  Serious: Yes (Hospitalization)
  Sender: FDA-Public Use
  Company Number: JP-UCBSA-2015035453

PATIENT
  Age: 85 Year
  Sex: Female

DRUGS (3)
  1. KEPPRA [Suspect]
     Active Substance: LEVETIRACETAM
     Indication: PARTIAL SEIZURES
     Dosage: 500 MG, ONCE DAILY (QD)
     Route: 048
     Dates: start: 201406, end: 2014
  2. SODIUM VALPROATE [Suspect]
     Active Substance: VALPROATE SODIUM
     Indication: PRODUCT USED FOR UNKNOWN INDICATION
     Dosage: 400 MG DAILY
     Route: 048
     Dates: start: 20140801, end: 20150825
  3. KEPPRA [Suspect]
     Active Substance: LEVETIRACETAM
     Dosage: 1000 MG, ONCE DAILY (QD)
     Route: 048
     Dates: start: 20140701, end: 20150731

REACTIONS (3)
  - Epilepsy [Unknown]
  - Decreased appetite [Not Recovered/Not Resolved]
  - Nutritional condition abnormal [Unknown]

NARRATIVE: CASE EVENT DATE: 20140901
